FAERS Safety Report 10611980 (Version 3)
Quarter: 2015Q1

REPORT INFORMATION
  Report Type: Spontaneous
  Country: US (occurrence: US)
  Receive Date: 20141126
  Receipt Date: 20150319
  Transmission Date: 20150720
  Serious: Yes (Death, Life-Threatening, Hospitalization, Other)
  Sender: FDA-Public Use
  Company Number: US-009507513-1411USA012608

PATIENT
  Sex: Female
  Weight: 72.11 kg

DRUGS (4)
  1. JANUMET [Suspect]
     Active Substance: METFORMIN HYDROCHLORIDE\SITAGLIPTIN PHOSPHATE
     Indication: TYPE 2 DIABETES MELLITUS
     Dosage: 50 MG, BID
     Route: 048
     Dates: start: 20110721, end: 20111205
  2. VICTOZA [Suspect]
     Active Substance: LIRAGLUTIDE
     Indication: TYPE 2 DIABETES MELLITUS
     Dosage: 18 MICROGRAM, QD
     Dates: start: 20120622, end: 20121120
  3. JANUMET [Suspect]
     Active Substance: METFORMIN HYDROCHLORIDE\SITAGLIPTIN PHOSPHATE
     Dosage: 50 MG / 500-1000 MG, UNK
     Route: 048
  4. JANUMET [Suspect]
     Active Substance: METFORMIN HYDROCHLORIDE\SITAGLIPTIN PHOSPHATE
     Dosage: 50 MG, BID
     Route: 048
     Dates: start: 20120307, end: 20130415

REACTIONS (25)
  - Metastases to adrenals [Unknown]
  - Appendicectomy [Unknown]
  - Lymphadenopathy [Unknown]
  - Metastases to spleen [Unknown]
  - Vision blurred [Unknown]
  - Neuropathy peripheral [Unknown]
  - Umbilical hernia [Unknown]
  - Renal cyst [Unknown]
  - Splenic vein occlusion [Unknown]
  - Spinal osteoarthritis [Unknown]
  - Hypertension [Unknown]
  - Diverticulum intestinal [Unknown]
  - Diabetes mellitus inadequate control [Unknown]
  - Hyperlipidaemia [Unknown]
  - Pancreatic carcinoma metastatic [Fatal]
  - Pancreatitis [Unknown]
  - Laparoscopy [Unknown]
  - Dyspnoea [Unknown]
  - Ecchymosis [Unknown]
  - Adrenal adenoma [Unknown]
  - Pancreatic cyst [Unknown]
  - Neck pain [Unknown]
  - Haemangioma of bone [Unknown]
  - Gastric varices [Unknown]
  - Depression [Unknown]

NARRATIVE: CASE EVENT DATE: 20120706
